FAERS Safety Report 5773339-5 (Version None)
Quarter: 2008Q2

REPORT INFORMATION
  Report Type: 
  Country: None (occurrence: None)
  Receive Date: 20080616
  Receipt Date: 20080606
  Transmission Date: 20081010
  Serious: Yes (Other)
  Sender: FDA-Public Use
  Company Number: PHHY2008JP08050

PATIENT
  Sex: Male

DRUGS (12)
  1. COMTAN [Suspect]
     Indication: DRUG EFFECT DECREASED
     Dosage: 100 MG, BID
     Route: 048
     Dates: start: 20080423, end: 20080427
  2. COMTAN [Suspect]
     Indication: PARKINSON'S DISEASE
     Dosage: 200 MG, UNK
     Route: 048
     Dates: start: 20080428, end: 20080502
  3. COMTAN [Suspect]
     Dosage: 100 MG, UNK
     Route: 048
     Dates: start: 20080503, end: 20080505
  4. MADOPAR [Concomitant]
     Indication: PARKINSON'S DISEASE
     Dosage: 300 MG, UNK
     Route: 048
     Dates: start: 20030701, end: 20080518
  5. MADOPAR [Concomitant]
     Dosage: 400 MG, UNK
     Route: 048
  6. MADOPAR [Concomitant]
     Dosage: 500 MG, UNK
     Route: 048
  7. MADOPAR [Concomitant]
     Dosage: 450 MG, UNK
     Route: 048
  8. MADOPAR [Concomitant]
     Dosage: 350 MG, UNK
     Route: 048
  9. MENESIT [Concomitant]
     Indication: PARKINSON'S DISEASE
     Dosage: 350 MG, UNK
     Route: 048
     Dates: start: 20080519
  10. SELEGILINE HCL [Concomitant]
     Indication: PARKINSON'S DISEASE
     Dosage: 5 MG, UNK
     Route: 048
     Dates: start: 20031126, end: 20080427
  11. SIFROL [Concomitant]
     Indication: PARKINSON'S DISEASE
     Dosage: 3 MG, UNK
     Route: 048
     Dates: start: 20070531
  12. PERMAX [Concomitant]

REACTIONS (5)
  - ALANINE AMINOTRANSFERASE INCREASED [None]
  - ASPARTATE AMINOTRANSFERASE INCREASED [None]
  - BLOOD LACTATE DEHYDROGENASE INCREASED [None]
  - HEPATIC ENZYME INCREASED [None]
  - LIVER DISORDER [None]
